FAERS Safety Report 8509368-8 (Version None)
Quarter: 2012Q3

REPORT INFORMATION
  Report Type: 
  Country: None (occurrence: None)
  Receive Date: 20120713
  Receipt Date: 20120703
  Transmission Date: 20120928
  Serious: Yes (Hospitalization, Other)
  Sender: FDA-Public Use
  Company Number: NL-AMGEN-NLDSP2012021944

PATIENT
  Age: 74 Year
  Sex: Male

DRUGS (3)
  1. ENBREL [Suspect]
     Indication: RHEUMATOID ARTHRITIS
     Dosage: 50 MG, WEEKLY
     Dates: start: 20101201
  2. FOLIC ACID [Concomitant]
     Dosage: UNK
  3. METHOTREXATE SODIUM [Concomitant]
     Dosage: UNK

REACTIONS (3)
  - RESPIRATORY TRACT INFECTION [None]
  - CONTUSION [None]
  - PNEUMONIA [None]
